FAERS Safety Report 8915601 (Version 1)
Quarter: 2012Q4

REPORT INFORMATION
  Report Type: 
  Country: IT (occurrence: IT)
  Receive Date: 20121119
  Receipt Date: 20121119
  Transmission Date: 20130627
  Serious: Yes (Hospitalization)
  Sender: FDA-Public Use
  Company Number: IT-TEVA-368766ISR

PATIENT
  Age: 34 Year
  Sex: Male

DRUGS (6)
  1. OLANZAPINA TEVA [Suspect]
     Route: 048
     Dates: start: 20121018, end: 20121018
  2. HALDOL [Suspect]
     Route: 048
     Dates: start: 20121018, end: 20121018
  3. TRIATEC [Suspect]
     Route: 048
     Dates: start: 20121018, end: 20121018
  4. LARGACTIL [Suspect]
     Route: 048
     Dates: start: 20121018, end: 20121018
  5. TEGRETOL [Suspect]
     Route: 048
     Dates: start: 20121018, end: 20121018
  6. DEPAKIN [Suspect]
     Route: 048
     Dates: start: 20121018, end: 20121018

REACTIONS (1)
  - Poisoning deliberate [Unknown]
